FAERS Safety Report 15781417 (Version 1)
Quarter: 2019Q1

REPORT INFORMATION
  Report Type: Spontaneous
  Country: US (occurrence: US)
  Receive Date: 20190102
  Receipt Date: 20190102
  Transmission Date: 20190417
  Serious: No
  Sender: FDA-Public Use
  Company Number: US-SA-2018SA395732

PATIENT
  Age: 20 Year
  Sex: Male

DRUGS (1)
  1. ALLEGRA D-12 HOUR [Suspect]
     Active Substance: FEXOFENADINE HYDROCHLORIDE\PSEUDOEPHEDRINE HYDROCHLORIDE
     Indication: OROPHARYNGEAL PAIN
     Dosage: UNK UNK, BID
     Route: 065

REACTIONS (2)
  - Product residue present [Unknown]
  - Gastrointestinal disorder [Unknown]
